FAERS Safety Report 4549954-3 (Version None)
Quarter: 2005Q1

REPORT INFORMATION
  Report Type: 
  Country: None (occurrence: None)
  Receive Date: 20050112
  Receipt Date: 20050105
  Transmission Date: 20050727
  Serious: Yes (Death, Hospitalization)
  Sender: FDA-Public Use
  Company Number: PHEH2005US00572

PATIENT
  Age: 89 Year
  Sex: Male

DRUGS (10)
  1. ZELNORM [Suspect]
     Indication: IRRITABLE BOWEL SYNDROME
     Dosage: UNK, UNK
     Dates: start: 20041022
  2. LASIX [Concomitant]
     Indication: CARDIAC FAILURE CONGESTIVE
     Dosage: 20 MG, QD
     Route: 048
     Dates: end: 20041018
  3. LASIX [Concomitant]
     Dosage: 40 MG, QD
     Route: 048
     Dates: start: 20041019
  4. LISINOPRIL [Concomitant]
     Dosage: 2.5 MG, QD
     Route: 048
     Dates: end: 20041021
  5. LISINOPRIL [Concomitant]
     Dosage: 5 MG, BID
     Route: 048
     Dates: start: 20041022
  6. PRILOSEC [Concomitant]
  7. POTASSIUM CHLORIDE [Concomitant]
  8. METAMUCIL-2 [Concomitant]
     Dosage: 5 TBSP QD
  9. LAXATIVES [Concomitant]
  10. COLACE [Concomitant]
     Dosage: 250 MG, BID

REACTIONS (7)
  - ABDOMINAL PAIN [None]
  - COLITIS ISCHAEMIC [None]
  - GASTROINTESTINAL NECROSIS [None]
  - HYPONATRAEMIA [None]
  - INTESTINAL PERFORATION [None]
  - SMALL INTESTINAL OBSTRUCTION [None]
  - SURGERY [None]
